FAERS Safety Report 26070796 (Version 1)
Quarter: 2025Q4

REPORT INFORMATION
  Report Type: Spontaneous
  Country: US (occurrence: US)
  Receive Date: 20251120
  Receipt Date: 20251120
  Transmission Date: 20260118
  Serious: No
  Sender: SANOFI AVENTIS
  Company Number: US-SA-2025SA346778

PATIENT
  Age: 13 Year
  Sex: Female

DRUGS (4)
  1. DUPIXENT [Suspect]
     Active Substance: DUPILUMAB
     Indication: Dermatitis atopic
     Dosage: 200 MG, QOW
     Route: 058
     Dates: start: 20250820
  2. CETIRIZINE HCL [Concomitant]
     Active Substance: CETIRIZINE HYDROCHLORIDE
  3. MAGNESIUM [Concomitant]
     Active Substance: MAGNESIUM
  4. VITAMINS [Concomitant]
     Active Substance: VITAMINS

REACTIONS (4)
  - Discomfort [Unknown]
  - Sleep disorder due to a general medical condition [Unknown]
  - Arthralgia [Unknown]
  - Rash [Unknown]

NARRATIVE: CASE EVENT DATE: 20250101
